FAERS Safety Report 23596195 (Version 1)
Quarter: 2024Q1

REPORT INFORMATION
  Report Type: Spontaneous
  Country: US (occurrence: US)
  Receive Date: 20240305
  Receipt Date: 20240305
  Transmission Date: 20240409
  Serious: No
  Sender: FDA-Public Use
  Company Number: US-SA-SAC20240228001167

PATIENT
  Sex: Female

DRUGS (2)
  1. DUPIXENT [Suspect]
     Active Substance: DUPILUMAB
     Indication: Nasal polyps
     Dosage: 300 MG, QOW
     Route: 058
  2. BUDESONIDE [Suspect]
     Active Substance: BUDESONIDE

REACTIONS (5)
  - Urticaria [Recovered/Resolved]
  - Feeling cold [Unknown]
  - Rhinalgia [Unknown]
  - Nasal dryness [Unknown]
  - Arthropathy [Unknown]
